FAERS Safety Report 4467757-5 (Version None)
Quarter: 2004Q4

REPORT INFORMATION
  Report Type: 
  Country: None (occurrence: None)
  Receive Date: 20041001
  Receipt Date: 20040920
  Transmission Date: 20050328
  Serious: Yes (Other)
  Sender: FDA-Public Use
  Company Number: 205078

PATIENT
  Sex: Female
  Weight: 77.1115 kg

DRUGS (2)
  1. AVONEX [Suspect]
     Indication: MULTIPLE SCLEROSIS
     Dosage: 30 MCG QW IM
     Route: 030
     Dates: start: 20030101
  2. ZOLOFT [Concomitant]

REACTIONS (8)
  - CONDITION AGGRAVATED [None]
  - DIFFICULTY IN WALKING [None]
  - HEPATITIS C [None]
  - INJECTION SITE PAIN [None]
  - INJECTION SITE REACTION [None]
  - MUSCULAR WEAKNESS [None]
  - MYALGIA [None]
  - SKIN TIGHTNESS [None]
